FAERS Safety Report 4509355-0 (Version None)
Quarter: 2004Q4

REPORT INFORMATION
  Report Type: 
  Country: None (occurrence: None)
  Receive Date: 20041025
  Receipt Date: 20040806
  Transmission Date: 20050328
  Serious: Yes (Other)
  Sender: FDA-Public Use
  Company Number: US-JNJFOC-20040802339

PATIENT
  Age: 42 Year
  Sex: Female

DRUGS (4)
  1. INFLIXMAB (INFLIXIMAB, RECOMBINANT) LYOPHILIZED POWDER [Suspect]
     Indication: RHEUMATOID ARTHRITIS
     Dosage: , 1 IN 4 WEEK, INTRAVENOUS
     Route: 042
     Dates: start: 20010530
  2. INFLIXMAB (INFLIXIMAB, RECOMBINANT) LYOPHILIZED POWDER [Suspect]
     Indication: RHEUMATOID ARTHRITIS
     Dosage: , 1 IN 4 WEEK, INTRAVENOUS
     Route: 042
     Dates: start: 20030501
  3. METHOTREXATE [Concomitant]
  4. FOLIC ACID [Concomitant]

REACTIONS (2)
  - OEDEMA [None]
  - URTICARIA [None]
